FAERS Safety Report 15169638 (Version 1)
Quarter: 2018Q3

REPORT INFORMATION
  Report Type: Spontaneous
  Country: FR (occurrence: FR)
  Receive Date: 20180720
  Receipt Date: 20180720
  Transmission Date: 20181010
  Serious: Yes (Hospitalization)
  Sender: FDA-Public Use
  Company Number: FR-009507513-1807FRA006024

PATIENT
  Age: 85 Year
  Sex: Male
  Weight: 80 kg

DRUGS (7)
  1. AZILECT [Concomitant]
     Active Substance: RASAGILINE MESYLATE
     Dosage: 1 DF, QD
     Route: 048
  2. EFFEXOR LP [Concomitant]
     Active Substance: VENLAFAXINE HYDROCHLORIDE
     Indication: DEPRESSION
     Dosage: 1 DF, QD
     Route: 048
  3. SINEMET [Suspect]
     Active Substance: CARBIDOPA\LEVODOPA
     Indication: PARKINSON^S DISEASE
     Dosage: UNK
     Route: 048
     Dates: start: 20170101, end: 20180531
  4. DOMPERIDONE [Concomitant]
     Active Substance: DOMPERIDONE
     Dosage: UNK
     Route: 048
  5. URBANYL [Concomitant]
     Active Substance: CLOBAZAM
     Indication: DEPRESSION
     Dosage: 1 DF, QD
     Route: 048
  6. LAMISIL [Concomitant]
     Active Substance: TERBINAFINE HYDROCHLORIDE
     Dosage: 1 DF, QD
     Route: 048
  7. OMEXEL [Concomitant]
     Active Substance: TAMSULOSIN HYDROCHLORIDE
     Indication: PROSTATE CANCER
     Dosage: 1 DF, QD; FORMULATION: PROLONGED RELEASE FILM?COATED TABLET
     Route: 048

REACTIONS (1)
  - Autoimmune haemolytic anaemia [Recovering/Resolving]

NARRATIVE: CASE EVENT DATE: 20180512
